FAERS Safety Report 4502202-2 (Version None)
Quarter: 2004Q4

REPORT INFORMATION
  Report Type: 
  Country: None (occurrence: None)
  Receive Date: 20041109
  Receipt Date: 20041026
  Transmission Date: 20050328
  Serious: Yes (Hospitalization, Other)
  Sender: FDA-Public Use
  Company Number: DE_041014567

PATIENT
  Age: 85 Year
  Sex: Female
  Weight: 61 kg

DRUGS (1)
  1. YENTREVE         (DULOXETINE HYDROCHLORIDE) [Suspect]
     Dates: start: 20041001

REACTIONS (2)
  - FALL [None]
  - SYNCOPE [None]
